FAERS Safety Report 11457067 (Version 2)
Quarter: 2016Q1

REPORT INFORMATION
  Report Type: Report from Study
  Country: US (occurrence: US)
  Receive Date: 20150904
  Receipt Date: 20160120
  Transmission Date: 20160525
  Serious: No
  Sender: FDA-Public Use
  Company Number: US-AMGEN-USASP2015090892

PATIENT
  Age: 55 Year
  Sex: Female

DRUGS (1)
  1. ENBREL [Suspect]
     Active Substance: ETANERCEPT
     Indication: RHEUMATOID ARTHRITIS
     Dosage: UNK UNK, ONCE WEEKLY
     Route: 065

REACTIONS (5)
  - Rhinorrhoea [Unknown]
  - Eye infection [Unknown]
  - Eye swelling [Unknown]
  - Hordeolum [Unknown]
  - Nasal congestion [Unknown]

NARRATIVE: CASE EVENT DATE: 201509
